FAERS Safety Report 8267081-9 (Version None)
Quarter: 2012Q2

REPORT INFORMATION
  Report Type: 
  Country: None (occurrence: None)
  Receive Date: 20120409
  Receipt Date: 20120328
  Transmission Date: 20120825
  Serious: Yes (Other)
  Sender: FDA-Public Use
  Company Number: US-ELI_LILLY_AND_COMPANY-US201204000114

PATIENT
  Sex: Female

DRUGS (4)
  1. NAMENDA [Concomitant]
     Indication: DEMENTIA
  2. FENTANYL CITRATE [Concomitant]
  3. FORTEO [Suspect]
     Indication: OSTEOPOROSIS
     Dosage: 20 UG, QD
  4. LIDODERM [Concomitant]

REACTIONS (10)
  - PELVIC FRACTURE [None]
  - LIP INJURY [None]
  - TONGUE INJURY [None]
  - PAIN [None]
  - AGGRESSION [None]
  - PERIORBITAL HAEMATOMA [None]
  - BITE [None]
  - EPISTAXIS [None]
  - EXCORIATION [None]
  - FALL [None]
